FAERS Safety Report 6763822-8 (Version None)
Quarter: 2010Q2

REPORT INFORMATION
  Report Type: 
  Country: None (occurrence: None)
  Receive Date: 20100610
  Receipt Date: 20100530
  Transmission Date: 20101027
  Serious: Yes (Other)
  Sender: FDA-Public Use
  Company Number: DE-PFIZER INC-2010068943

PATIENT
  Age: 60 Year
  Sex: Male

DRUGS (2)
  1. INSPRA [Suspect]
     Route: 048
  2. ALLOPURINOL [Concomitant]

REACTIONS (2)
  - BLOOD CREATININE INCREASED [None]
  - DEVICE OCCLUSION [None]
